FAERS Safety Report 15711529 (Version 3)
Quarter: 2019Q3

REPORT INFORMATION
  Report Type: Report from Study
  Country: US (occurrence: US)
  Receive Date: 20181211
  Receipt Date: 20190701
  Transmission Date: 20191004
  Serious: No
  Sender: FDA-Public Use
  Company Number: US-ROCHE-2226447

PATIENT
  Age: 48 Year
  Sex: Female
  Weight: 71.73 kg

DRUGS (3)
  1. OCREVUS [Suspect]
     Active Substance: OCRELIZUMAB
     Indication: RELAPSING MULTIPLE SCLEROSIS
     Route: 042
     Dates: start: 201805, end: 201901
  2. VALTREX [Concomitant]
     Active Substance: VALACYCLOVIR HYDROCHLORIDE
     Indication: PRODUCT USED FOR UNKNOWN INDICATION
     Route: 065
  3. BACTRIM [Concomitant]
     Active Substance: SULFAMETHOXAZOLE\TRIMETHOPRIM
     Indication: PRODUCT USED FOR UNKNOWN INDICATION
     Route: 065

REACTIONS (17)
  - Skin infection [Recovered/Resolved]
  - Hypersomnia [Recovered/Resolved]
  - Visual impairment [Recovered/Resolved]
  - Pain [Unknown]
  - Speech disorder [Recovered/Resolved]
  - Increased tendency to bruise [Recovered/Resolved]
  - Weight increased [Recovered/Resolved]
  - Impaired healing [Not Recovered/Not Resolved]
  - Hypoaesthesia [Recovered/Resolved]
  - Alopecia [Recovered/Resolved]
  - Localised infection [Recovering/Resolving]
  - Neurodermatitis [Not Recovered/Not Resolved]
  - Feeling abnormal [Recovered/Resolved]
  - Fatigue [Recovered/Resolved]
  - Infection [Not Recovered/Not Resolved]
  - Swelling [Recovered/Resolved]
  - Impaired healing [Unknown]

NARRATIVE: CASE EVENT DATE: 201809
